FAERS Safety Report 7226800-0 (Version None)
Quarter: 2011Q1

REPORT INFORMATION
  Report Type: 
  Country: None (occurrence: None)
  Receive Date: 20110114
  Receipt Date: 20110106
  Transmission Date: 20110831
  Serious: Yes (Hospitalization)
  Sender: FDA-Public Use
  Company Number: FR-SANOFI-AVENTIS-2011SA001417

PATIENT
  Age: 88 Year
  Sex: Female

DRUGS (6)
  1. ALDACTONE [Suspect]
     Route: 048
     Dates: start: 20100101, end: 20101214
  2. MULTAQ [Suspect]
     Indication: ATRIAL FIBRILLATION
     Route: 048
     Dates: start: 20101208, end: 20101214
  3. BISOPROLOL FUMARATE [Concomitant]
     Route: 048
  4. PREVISCAN [Concomitant]
     Route: 048
  5. ATACAND [Concomitant]
     Route: 048
  6. LASIX [Concomitant]
     Route: 048
     Dates: end: 20101214

REACTIONS (1)
  - RENAL FAILURE ACUTE [None]
